FAERS Safety Report 20290962 (Version 2)
Quarter: 2022Q1

REPORT INFORMATION
  Report Type: Spontaneous
  Country: RU (occurrence: None)
  Receive Date: 20220104
  Receipt Date: 20220128
  Transmission Date: 20220423
  Serious: Yes (Other)
  Sender: FDA-Public Use
  Company Number: 2021A908332

PATIENT
  Age: 56 Year
  Sex: Female

DRUGS (1)
  1. SYMBICORT [Suspect]
     Active Substance: BUDESONIDE\FORMOTEROL FUMARATE DIHYDRATE
     Dosage: 160/4.5 MCG\DOSE, 120 DOSES (BATCH EADC), 2 DOSES IN THE MORNING AND 2 DOSES IN THE EVENING
     Route: 055
     Dates: start: 20211216

REACTIONS (6)
  - Asphyxia [Recovered/Resolved]
  - Asthma [Recovered/Resolved]
  - Choking [Recovered/Resolved]
  - General physical condition abnormal [Unknown]
  - Drug ineffective [Unknown]
  - Product quality issue [Unknown]

NARRATIVE: CASE EVENT DATE: 20211218
